FAERS Safety Report 10188286 (Version 1)
Quarter: 2014Q2

REPORT INFORMATION
  Report Type: Spontaneous
  Country: US (occurrence: None)
  Receive Date: 20140521
  Receipt Date: 20140521
  Transmission Date: 20141212
  Serious: No
  Sender: FDA-Public Use
  Company Number: None

PATIENT
  Age: 7 Day
  Sex: Female
  Weight: 48.54 kg

DRUGS (1)
  1. CIPROFLOXACIN [Suspect]
     Indication: INFECTION
     Route: 048
     Dates: start: 20140403, end: 20140409

REACTIONS (4)
  - Tendonitis [None]
  - Pain in extremity [None]
  - Back pain [None]
  - Arthralgia [None]
